FAERS Safety Report 7956986-1 (Version None)
Quarter: 2011Q4

REPORT INFORMATION
  Report Type: 
  Country: None (occurrence: None)
  Receive Date: 20111205
  Receipt Date: 20111205
  Transmission Date: 20120403
  Serious: Yes (Other)
  Sender: FDA-Public Use
  Company Number: None

PATIENT
  Age: 45 Year
  Sex: Female
  Weight: 106.59 kg

DRUGS (1)
  1. GABAPENTIN [Suspect]
     Indication: MIGRAINE
     Dosage: 300MG
     Route: 048

REACTIONS (3)
  - DYSPNOEA [None]
  - DIZZINESS [None]
  - SWELLING [None]
